FAERS Safety Report 9316487 (Version 24)
Quarter: 2015Q1

REPORT INFORMATION
  Report Type: Report from Study
  Country: GB (occurrence: GB)
  Receive Date: 20130530
  Receipt Date: 20150211
  Transmission Date: 20150721
  Serious: Yes (Life-Threatening, Hospitalization)
  Sender: FDA-Public Use
  Company Number: GB-ROCHE-1228517

PATIENT
  Age: 44 Year
  Sex: Female
  Weight: 51.8 kg

DRUGS (27)
  1. SENNA [Concomitant]
     Active Substance: SENNA LEAF\SENNOSIDES\SENNOSIDES A AND B
     Dosage: TOTAL DAILY DOSE: 2 SACHETS.
     Route: 065
     Dates: start: 20130518
  2. CLENIL MODULITE [Concomitant]
     Active Substance: BECLOMETHASONE DIPROPIONATE
     Dosage: TOTAL DAILY DOSE: 2 PUFFS
     Route: 065
     Dates: start: 2013
  3. TRASTUZUMAB EMTANSINE [Suspect]
     Active Substance: ADO-TRASTUZUMAB EMTANSINE
     Indication: HER-2 POSITIVE BREAST CANCER
     Dosage: 3.6MG/KG AS PER PROTOCOL. LAST DOSE PRIOR TO MELAENA WAS 30/APR/2013.
     Route: 042
     Dates: start: 20130205
  4. OMEPRAZOLE. [Concomitant]
     Active Substance: OMEPRAZOLE
     Route: 065
     Dates: start: 20130517, end: 20140210
  5. OMEPRAZOLE. [Concomitant]
     Active Substance: OMEPRAZOLE
     Route: 065
     Dates: start: 20130907
  6. SENNA [Concomitant]
     Active Substance: SENNA LEAF\SENNOSIDES\SENNOSIDES A AND B
     Dosage: 1 TABLET
     Route: 065
     Dates: start: 20130517, end: 20140210
  7. DOCUSATE SODIUM. [Concomitant]
     Active Substance: DOCUSATE SODIUM
     Dosage: TOTAL DAILY DOSE: 100-200MG.
     Route: 065
     Dates: start: 2013, end: 20140218
  8. CLENIL MODULITE [Concomitant]
     Active Substance: BECLOMETHASONE DIPROPIONATE
     Dosage: 2 PUFFS.
     Route: 065
     Dates: start: 20130815
  9. TRASTUZUMAB EMTANSINE [Suspect]
     Active Substance: ADO-TRASTUZUMAB EMTANSINE
     Dosage: DOSE REDUCED DUE TO FIRST GASTROINTESTINAL BLEED.?MOST RECENT DOSE PRIOR TO GASTROINTESTINAL BLEED (
     Route: 042
     Dates: start: 20130806, end: 20131028
  10. OMEPRAZOLE. [Concomitant]
     Active Substance: OMEPRAZOLE
     Route: 065
     Dates: start: 20130926
  11. SENNA [Concomitant]
     Active Substance: SENNA LEAF\SENNOSIDES\SENNOSIDES A AND B
     Route: 065
     Dates: start: 20130926
  12. PARACETAMOL [Concomitant]
     Active Substance: ACETAMINOPHEN
     Route: 065
     Dates: start: 20130206
  13. OMEPRAZOLE. [Concomitant]
     Active Substance: OMEPRAZOLE
     Route: 065
     Dates: start: 20130815, end: 20130815
  14. SENNA [Concomitant]
     Active Substance: SENNA LEAF\SENNOSIDES\SENNOSIDES A AND B
     Route: 065
     Dates: start: 20131012, end: 20131026
  15. DOMPERIDONE [Concomitant]
     Active Substance: DOMPERIDONE
     Route: 065
     Dates: start: 20131023, end: 20131023
  16. SENNA [Concomitant]
     Active Substance: SENNA LEAF\SENNOSIDES\SENNOSIDES A AND B
     Route: 065
     Dates: start: 20130521
  17. CLENIL MODULITE [Concomitant]
     Active Substance: BECLOMETHASONE DIPROPIONATE
     Dosage: TOTAL DAILY DOSE: 2 PUFFS
     Route: 065
     Dates: start: 2000
  18. TRASTUZUMAB EMTANSINE [Suspect]
     Active Substance: ADO-TRASTUZUMAB EMTANSINE
     Dosage: MOST RECENT DOSE PRIOR TO GASTROINTESTINAL BLEED (FIRST EPISODE): 172MG ON 09/JUL/2013.
     Route: 042
     Dates: start: 20130220
  19. PARACETAMOL [Concomitant]
     Active Substance: ACETAMINOPHEN
     Dosage: TOTAL DAILY DOSE: 1 TO 4 GM.
     Route: 065
     Dates: start: 20130302
  20. DOMPERIDONE [Concomitant]
     Active Substance: DOMPERIDONE
     Route: 065
     Dates: start: 20130207
  21. SENNA [Concomitant]
     Active Substance: SENNA LEAF\SENNOSIDES\SENNOSIDES A AND B
     Route: 065
     Dates: start: 20130907, end: 20130907
  22. PARACETAMOL [Concomitant]
     Active Substance: ACETAMINOPHEN
     Route: 065
     Dates: start: 20131012, end: 20131026
  23. BECLOMETHASONE [Concomitant]
     Active Substance: BECLOMETHASONE
     Dosage: TOTAL DAILY DOSE: 4 PUFFS.
     Route: 065
     Dates: start: 1993
  24. OMEPRAZOLE. [Concomitant]
     Active Substance: OMEPRAZOLE
     Route: 065
     Dates: start: 20131012, end: 20131026
  25. SENNA [Concomitant]
     Active Substance: SENNA LEAF\SENNOSIDES\SENNOSIDES A AND B
     Dosage: TOTAL DAILY DOSE: 2 SACHETS
     Route: 065
     Dates: start: 20130816, end: 20130816
  26. DOCUSATE SODIUM. [Concomitant]
     Active Substance: DOCUSATE SODIUM
     Route: 065
     Dates: start: 20130926, end: 20130926
  27. ONDANSETRON [Concomitant]
     Active Substance: ONDANSETRON
     Route: 065
     Dates: start: 20130207

REACTIONS (5)
  - Anaemia [Recovered/Resolved]
  - Melaena [Recovered/Resolved]
  - Melaena [Recovered/Resolved]
  - Gastrointestinal haemorrhage [Recovered/Resolved]
  - Anaemia [Recovered/Resolved]

NARRATIVE: CASE EVENT DATE: 20130516
